FAERS Safety Report 7948172-6 (Version None)
Quarter: 2011Q4

REPORT INFORMATION
  Report Type: 
  Country: None (occurrence: None)
  Receive Date: 20111125
  Receipt Date: 20111108
  Transmission Date: 20120403
  Serious: Yes (Other)
  Sender: FDA-Public Use
  Company Number: FK201102670

PATIENT
  Age: 59 Year
  Sex: Female

DRUGS (1)
  1. MITOXANTRONE [Suspect]
     Indication: MULTIPLE SCLEROSIS
     Dosage: 64 MG/M2, TOTAL

REACTIONS (7)
  - SUBARACHNOID HAEMORRHAGE [None]
  - APHASIA [None]
  - ACUTE PROMYELOCYTIC LEUKAEMIA [None]
  - BLADDER DYSFUNCTION [None]
  - MUCOSAL HAEMORRHAGE [None]
  - PARAPARESIS [None]
  - DYSPNOEA [None]
